FAERS Safety Report 7755406-X (Version None)
Quarter: 2011Q3

REPORT INFORMATION
  Report Type: 
  Country: None (occurrence: None)
  Receive Date: 20110916
  Receipt Date: 20110905
  Transmission Date: 20111222
  Serious: Yes (Hospitalization)
  Sender: FDA-Public Use
  Company Number: JP-JNJFOC-20100502837

PATIENT
  Sex: Male
  Weight: 58 kg

DRUGS (18)
  1. PREDNISOLONE [Suspect]
     Route: 048
     Dates: start: 20091009, end: 20091210
  2. REMICADE [Suspect]
     Indication: RHEUMATOID ARTHRITIS
     Route: 042
     Dates: start: 20100428
  3. RHEUMATREX [Suspect]
     Route: 048
     Dates: start: 20100205, end: 20100218
  4. AZULFIDINE [Suspect]
     Route: 048
     Dates: start: 20091106, end: 20100107
  5. PREDNISOLONE [Suspect]
     Indication: RHEUMATOID ARTHRITIS
     Route: 048
     Dates: start: 20091225, end: 20100121
  6. PREDNISOLONE [Suspect]
     Route: 048
     Dates: start: 20100305, end: 20100520
  7. ZOSYN [Concomitant]
     Route: 042
     Dates: start: 20100508, end: 20100514
  8. PREDNISOLONE [Concomitant]
     Route: 048
     Dates: start: 20100930, end: 20101014
  9. AZULFIDINE [Suspect]
     Indication: ILL-DEFINED DISORDER
     Route: 048
     Dates: start: 20091023, end: 20091106
  10. PAZUCROSS [Concomitant]
     Route: 042
     Dates: start: 20100504, end: 20100507
  11. PREDNISOLONE [Concomitant]
     Route: 048
     Dates: start: 20100521, end: 20100929
  12. PREDNISOLONE [Suspect]
     Route: 048
     Dates: start: 20091211, end: 20091225
  13. RHEUMATREX [Suspect]
     Route: 048
     Dates: start: 20100108, end: 20100204
  14. SULFAMETHOXAZOLE [Concomitant]
     Route: 048
     Dates: start: 20100506, end: 20100506
  15. RHEUMATREX [Suspect]
     Indication: RHEUMATOID ARTHRITIS
     Route: 048
     Dates: start: 20100219
  16. PREDNISOLONE [Suspect]
     Route: 048
     Dates: start: 20100122, end: 20100304
  17. SULFAMETHOXAZOLE [Concomitant]
     Route: 048
     Dates: start: 20100507
  18. ZOSYN [Concomitant]
     Route: 042
     Dates: start: 20100507, end: 20100507

REACTIONS (1)
  - NOCARDIOSIS [None]
